FAERS Safety Report 12998356 (Version 1)
Quarter: 2016Q4

REPORT INFORMATION
  Report Type: Spontaneous
  Country: BR (occurrence: BR)
  Receive Date: 20161205
  Receipt Date: 20161205
  Transmission Date: 20170207
  Serious: Yes (Other)
  Sender: FDA-Public Use
  Company Number: BR-PFIZER INC-2016551658

PATIENT
  Sex: Female
  Weight: 55 kg

DRUGS (2)
  1. LORAX [Suspect]
     Active Substance: LORAZEPAM
     Indication: PERINATAL DEPRESSION
     Dosage: UNK, 3X/DAY
     Route: 048
     Dates: start: 1996
  2. PROPANOLOL /00030001/ [Concomitant]
     Active Substance: PROPRANOLOL HYDROCHLORIDE
     Indication: CARDIAC DISORDER
     Dosage: 1 TABLET IN THE MORNING AND 1 TABLET AT NIGHT
     Route: 048

REACTIONS (3)
  - Hand fracture [Unknown]
  - Intentional product use issue [Unknown]
  - Upper limb fracture [Unknown]

NARRATIVE: CASE EVENT DATE: 20160921
